FAERS Safety Report 22600477 (Version 1)
Quarter: 2023Q2

REPORT INFORMATION
  Report Type: Spontaneous
  Country: US (occurrence: US)
  Receive Date: 20230614
  Receipt Date: 20230614
  Transmission Date: 20230722
  Serious: Yes (Other)
  Sender: FDA-Public Use
  Company Number: US-RECORDATI RARE DISEASE INC.-2023003469

PATIENT

DRUGS (9)
  1. DACTINOMYCIN [Suspect]
     Active Substance: DACTINOMYCIN
     Indication: Primitive neuroectodermal tumour
     Dosage: 1.2 MG/SQUARE METER, ADMINISTERED ON DAYS 1, 2, 3, 4, AND 5 OF WEEK 16
     Route: 042
  2. DACTINOMYCIN [Suspect]
     Active Substance: DACTINOMYCIN
     Indication: Off label use
  3. VINCRISTINE [Suspect]
     Active Substance: VINCRISTINE
     Indication: Primitive neuroectodermal tumour
     Dosage: 2 MG/SQUARE METER, ADMINISTERED ON DAY 1 OF WEEKS 1-13 AND WEEK 16 OF THERAPY
     Route: 042
  4. CISPLATIN [Suspect]
     Active Substance: CISPLATIN
     Indication: Primitive neuroectodermal tumour
     Dosage: 90 MG/SQUARE METER, ADMINISTERED ON DAY 1 OF WEEKS 1, 4, 7 AND 10
     Route: 042
  5. DOXORUBICIN [Suspect]
     Active Substance: DOXORUBICIN
     Indication: Primitive neuroectodermal tumour
     Dosage: 30 MG/SQUARE METER/DAY WITH CONTINUOUS INFUSION OVER THE COURSE OF 48 H, ADMINISTERED ON DAYS 2 AND
     Route: 041
  6. CYCLOPHOSPHAMIDE [Suspect]
     Active Substance: CYCLOPHOSPHAMIDE
     Indication: Primitive neuroectodermal tumour
     Dosage: 300 MG/SQUARE METER/DAY WITH CONTINUOUS INFUSION OVER THE COURSE OF 72 H, ADMINISTERED ON DAYS 2, 3,
     Route: 041
  7. CYCLOPHOSPHAMIDE [Suspect]
     Active Substance: CYCLOPHOSPHAMIDE
     Dosage: 600 MG/SQUARE METER, ADMINISTERED ON DAY 2 OF WEEKS 7 AND 10
     Route: 042
  8. ETOPOSIDE [Suspect]
     Active Substance: ETOPOSIDE
     Indication: Primitive neuroectodermal tumour
     Dosage: 100 MG/SQUARE METER, ADMINISTERED ON DAYS 1, 2, AND 3 OF WEEKS 4, 7, AND 10
     Route: 042
  9. TOPOTECAN [Suspect]
     Active Substance: TOPOTECAN HYDROCHLORIDE
     Indication: Primitive neuroectodermal tumour
     Dosage: 0.2 MG/SQUARE METER, ADMINISTERED ON DAY 1 OF WEEKS 1, 2, 4, 7 AND 13
     Route: 037

REACTIONS (2)
  - Venoocclusive liver disease [Unknown]
  - Drug effective for unapproved indication [Recovered/Resolved]
